FAERS Safety Report 5056231-3 (Version None)
Quarter: 2006Q2

REPORT INFORMATION
  Report Type: 
  Country: None (occurrence: None)
  Receive Date: 20060616
  Receipt Date: 20060103
  Transmission Date: 20061013
  Serious: Yes (Hospitalization)
  Sender: FDA-Public Use
  Company Number: 200520629US

PATIENT
  Age: 82 Year
  Sex: Female
  Weight: 53.63 kg

DRUGS (10)
  1. LANTUS [Suspect]
     Indication: DIABETES MELLITUS NON-INSULIN-DEPENDENT
     Dosage: 5 U QAM
     Dates: start: 20050912
  2. LANTUS [Suspect]
     Indication: DIABETES MELLITUS NON-INSULIN-DEPENDENT
     Dosage: 7 U QAM
  3. LANTUS [Suspect]
     Indication: DIABETES MELLITUS NON-INSULIN-DEPENDENT
     Dosage: 10 U HS
  4. OPTICLIK [Suspect]
  5. OPTICLIK [Suspect]
  6. NORVASC [Concomitant]
  7. LIPITOR [Concomitant]
  8. TAMOXIFEN CITRATE [Concomitant]
  9. FUROSEMIDE [Concomitant]
  10. STARLIX [Concomitant]

REACTIONS (3)
  - BLOOD GLUCOSE DECREASED [None]
  - BLOOD GLUCOSE INCREASED [None]
  - HYPERGLYCAEMIA [None]
